FAERS Safety Report 7682424-2 (Version None)
Quarter: 2011Q3

REPORT INFORMATION
  Report Type: 
  Country: None (occurrence: None)
  Receive Date: 20110815
  Receipt Date: 20110805
  Transmission Date: 20111222
  Serious: Yes (Hospitalization)
  Sender: FDA-Public Use
  Company Number: US-GENZYME-CERZ-1002196

PATIENT
  Sex: Female
  Weight: 6.14 kg

DRUGS (1)
  1. CEREZYME [Suspect]
     Dosage: 65 U/KG, QW
     Route: 042
     Dates: start: 20090831

REACTIONS (1)
  - BACTERAEMIA [None]
